FAERS Safety Report 7303922-7 (Version None)
Quarter: 2011Q1

REPORT INFORMATION
  Report Type: 
  Country: None (occurrence: None)
  Receive Date: 20110221
  Receipt Date: 20110214
  Transmission Date: 20110831
  Serious: Yes (Other)
  Sender: FDA-Public Use
  Company Number: AU-ROCHE-759717

PATIENT
  Age: 63 Year
  Sex: Female

DRUGS (5)
  1. DISPRIN [Concomitant]
  2. NORVASC [Concomitant]
  3. AMPICILLIN [Suspect]
     Dosage: FREQUENCY: 1 TIME
     Route: 042
     Dates: start: 20101117
  4. AMOXIL [Concomitant]
  5. CEFTRIAXONE SODIUM [Suspect]
     Dosage: FREQUENCY: 1 TIME
     Route: 042
     Dates: start: 20101117

REACTIONS (5)
  - ANAPHYLACTIC REACTION [None]
  - HYPOTENSION [None]
  - UNRESPONSIVE TO STIMULI [None]
  - FLUSHING [None]
  - TACHYCARDIA [None]
